FAERS Safety Report 7884298-3 (Version None)
Quarter: 2011Q4

REPORT INFORMATION
  Report Type: 
  Country: None (occurrence: None)
  Receive Date: 20111102
  Receipt Date: 20111019
  Transmission Date: 20120403
  Serious: Yes (Hospitalization)
  Sender: FDA-Public Use
  Company Number: US-ELI_LILLY_AND_COMPANY-US201110000645

PATIENT
  Sex: Female

DRUGS (10)
  1. FORTEO [Suspect]
     Indication: OSTEOPOROSIS
     Dosage: UNK, UNKNOWN
     Dates: start: 20110825
  2. GLUCOSAMINE [Concomitant]
  3. TUMS EXTRA STRENGTH [Concomitant]
  4. VITAMIN B6 [Concomitant]
     Dosage: 50 MG, QD
  5. ACTONEL [Concomitant]
  6. VITAMIN D [Concomitant]
  7. SYNTHROID [Concomitant]
     Dosage: 100 UG, QD
  8. FLINTSTONES [Concomitant]
     Dosage: UNK
     Dates: end: 20111001
  9. PHENERGAN HCL [Concomitant]
  10. PREVACID [Concomitant]
     Indication: REFLUX GASTRITIS
     Dosage: 30 MG, QD

REACTIONS (3)
  - ABDOMINAL PAIN [None]
  - INCORRECT STORAGE OF DRUG [None]
  - NEPHROLITHIASIS [None]
